FAERS Safety Report 18150136 (Version 2)
Quarter: 2020Q3

REPORT INFORMATION
  Report Type: Spontaneous
  Country: US (occurrence: US)
  Receive Date: 20200814
  Receipt Date: 20200907
  Transmission Date: 20201103
  Serious: Yes (Hospitalization, Other)
  Sender: FDA-Public Use
  Company Number: US-DRREDDYS-USA/USA/20/0123063

PATIENT
  Age: 55 Year
  Sex: Male

DRUGS (1)
  1. CELECOXIB ORAL SOLUTION [Suspect]
     Active Substance: CELECOXIB
     Indication: ARTHRALGIA
     Dosage: TAKING FOR YEARS

REACTIONS (2)
  - Acute kidney injury [Recovering/Resolving]
  - Hypercalcaemia [Recovering/Resolving]
